FAERS Safety Report 8201620-9 (Version None)
Quarter: 2012Q1

REPORT INFORMATION
  Report Type: 
  Country: None (occurrence: None)
  Receive Date: 20120307
  Receipt Date: 20120228
  Transmission Date: 20120608
  Serious: No
  Sender: FDA-Public Use
  Company Number: AUR-APL-2012-01170

PATIENT
  Age: 83 Year
  Sex: Male
  Weight: 68.2 kg

DRUGS (11)
  1. MIRTAZAPINE [Suspect]
     Indication: DEPRESSION
     Dosage: (15 MG),ORAL
     Route: 048
     Dates: start: 20111229, end: 20120114
  2. SINEMET CR [Concomitant]
  3. FINASTERIDE [Concomitant]
  4. QUETIAPINE FUMARATE [Concomitant]
  5. LAXIDO(MACROGOL 3350) [Concomitant]
  6. STALEVO (STALEVO) [Concomitant]
  7. FLUDROCORTISONE ACETATE [Concomitant]
  8. LANSOPRAZOLE [Concomitant]
  9. ACETAMINOPHEN [Concomitant]
  10. SLOW-K [Concomitant]
  11. ENTACAPONE [Concomitant]

REACTIONS (1)
  - NEUTROPENIA [None]
